FAERS Safety Report 5120628-3 (Version None)
Quarter: 2006Q4

REPORT INFORMATION
  Report Type: 
  Country: None (occurrence: None)
  Receive Date: 20061002
  Receipt Date: 20060914
  Transmission Date: 20070319
  Serious: Yes (Congenital Anomaly)
  Sender: FDA-Public Use
  Company Number: CA200609003922

PATIENT
  Sex: Female
  Weight: 2.7 kg

DRUGS (2)
  1. HUMALOG [Suspect]
     Dosage: SUBCUTANEOUS
     Route: 058
     Dates: end: 20050217
  2. HUMULIN N [Suspect]
     Dosage: SUBCUTANEOUS
     Route: 058
     Dates: end: 20050217

REACTIONS (2)
  - ANKYLOGLOSSIA CONGENITAL [None]
  - DRUG EXPOSURE DURING PREGNANCY [None]
